FAERS Safety Report 20654096 (Version 2)
Quarter: 2022Q2

REPORT INFORMATION
  Report Type: Other
  Country: US (occurrence: None)
  Receive Date: 20220330
  Receipt Date: 20220401
  Transmission Date: 20220721
  Serious: No
  Sender: FDA-Public Use
  Company Number: US-ROCHE-2984036

PATIENT
  Age: 71 Year
  Sex: Female
  Weight: 71.4 kg

DRUGS (15)
  1. XOLAIR [Suspect]
     Active Substance: OMALIZUMAB
     Indication: Idiopathic urticaria
     Dosage: (1) 150 MG/ML INJECTION IN EACH ARM EVERY 28 DAYS.
     Route: 058
     Dates: start: 20211220, end: 20220220
  2. XOLAIR [Suspect]
     Active Substance: OMALIZUMAB
  3. XOLAIR [Suspect]
     Active Substance: OMALIZUMAB
  4. CLONIDINE [Concomitant]
     Active Substance: CLONIDINE
     Indication: Hypertension
     Route: 048
     Dates: start: 20220211
  5. CYCLOSPORINE [Concomitant]
     Active Substance: CYCLOSPORINE
     Indication: Urticaria
     Route: 048
     Dates: start: 202006
  6. CYCLOSPORINE [Concomitant]
     Active Substance: CYCLOSPORINE
     Route: 048
  7. CYCLOSPORINE [Concomitant]
     Active Substance: CYCLOSPORINE
     Route: 048
     Dates: end: 202101
  8. CYCLOSPORINE [Concomitant]
     Active Substance: CYCLOSPORINE
     Route: 048
     Dates: start: 20220312
  9. ALLEGRA [Concomitant]
     Active Substance: FEXOFENADINE HYDROCHLORIDE
     Indication: Urticaria
     Dosage: (1) 180 MG TABLET TWICE DAILY
     Route: 048
     Dates: start: 2019
  10. FAMOTIDINE [Concomitant]
     Active Substance: FAMOTIDINE
     Indication: Urticaria
     Dosage: (2) 20 MG TABLETS DAILY
     Route: 048
     Dates: start: 2019
  11. DILAUDID [Concomitant]
     Active Substance: HYDROMORPHONE HYDROCHLORIDE
     Indication: Back pain
     Dates: start: 2009, end: 2017
  12. HYDROCODONE [Concomitant]
     Active Substance: HYDROCODONE
     Indication: Back pain
     Dosage: (1.5 ) 5/325 MG TABLETS AS NEEDED FOR PAIN
     Route: 048
     Dates: start: 2017
  13. TRAMADOL [Concomitant]
     Active Substance: TRAMADOL
     Indication: Back pain
     Dosage: UP TO 4 TIMES DAILY
     Route: 048
     Dates: start: 2017
  14. METOPROLOL [Concomitant]
     Active Substance: METOPROLOL
     Indication: Hypertension
     Route: 048
  15. METOPROLOL [Concomitant]
     Active Substance: METOPROLOL
     Route: 048

REACTIONS (5)
  - Migraine [Unknown]
  - Palpitations [Recovered/Resolved]
  - Dyspnoea [Unknown]
  - Diarrhoea [Recovered/Resolved]
  - Abdominal pain upper [Recovered/Resolved]

NARRATIVE: CASE EVENT DATE: 20211220
